FAERS Safety Report 9843422 (Version 1)
Quarter: 2013Q4

REPORT INFORMATION
  Report Type: Spontaneous
  Country: US (occurrence: None)
  Receive Date: 20131223
  Receipt Date: 20131223
  Transmission Date: 20140711
  Serious: No
  Sender: FDA-Public Use
  Company Number: 220248LEO

PATIENT
  Age: 65 Year
  Sex: Male

DRUGS (5)
  1. PICATO [Suspect]
     Indication: ACTINIC KERATOSIS
     Dosage: DAILY DERMAL
     Dates: start: 20130115, end: 20130117
  2. DEPAKOTE (VALPROATE SEMISODIUM) [Concomitant]
  3. LITHIUM (LITHIUM) [Concomitant]
  4. TAMSULOSIN (TAMSULOSIN) [Concomitant]
  5. LEVOTHYROID (LEVOTHYROID SODIUM) [Concomitant]

REACTIONS (5)
  - Application site irritation [None]
  - Application site pain [None]
  - Application site exfoliation [None]
  - Drug administered at inappropriate site [None]
  - Incorrect dose administered [None]
